FAERS Safety Report 23917187 (Version 1)
Quarter: 2024Q2

REPORT INFORMATION
  Report Type: Other
  Country: RO (occurrence: RO)
  Receive Date: 20240529
  Receipt Date: 20240529
  Transmission Date: 20240715
  Serious: Yes (Life-Threatening)
  Sender: FDA-Public Use
  Company Number: RO-B.Braun Medical Inc.-2157550

PATIENT
  Age: 31 Year
  Sex: Female

DRUGS (1)
  1. HEPARIN SODIUM IN DEXTROSE [Suspect]
     Active Substance: HEPARIN SODIUM
     Indication: Anticoagulant therapy

REACTIONS (1)
  - Drug ineffective [Unknown]
